FAERS Safety Report 7865656-X (Version None)
Quarter: 2011Q4

REPORT INFORMATION
  Report Type: 
  Country: None (occurrence: None)
  Receive Date: 20111028
  Receipt Date: 20110131
  Transmission Date: 20120403
  Serious: No
  Sender: FDA-Public Use
  Company Number: US-GLAXOSMITHKLINE-A0910717A

PATIENT
  Age: 23 Year
  Sex: Female

DRUGS (2)
  1. LEVOXYL [Concomitant]
  2. ADVAIR DISKUS 100/50 [Suspect]
     Indication: ASTHMA
     Dosage: 1PUFF TWICE PER DAY
     Route: 055
     Dates: start: 20110120, end: 20110122

REACTIONS (3)
  - THROAT IRRITATION [None]
  - DYSGEUSIA [None]
  - DYSPHONIA [None]
